FAERS Safety Report 14540653 (Version 2)
Quarter: 2018Q1

REPORT INFORMATION
  Report Type: Report from Study
  Country: CA (occurrence: CA)
  Receive Date: 20180216
  Receipt Date: 20180301
  Transmission Date: 20180509
  Serious: Yes (Death)
  Sender: FDA-Public Use
  Company Number: CA-HLSUS-2018-CA-000232

PATIENT
  Age: 46 Year
  Sex: Male
  Weight: 140 kg

DRUGS (10)
  1. SENNOSIDES. [Concomitant]
     Active Substance: SENNOSIDES
     Dosage: 8.6 MG 2 TABLETS ONCE A DAY AT BEDTIME ON EVEN DAYS ONLY
  2. NITROGLYCERIN. [Concomitant]
     Active Substance: NITROGLYCERIN
     Dosage: EVERY 5 MIN IF NEEDED
     Route: 060
  3. LEVOTHYROXIN [Concomitant]
     Active Substance: LEVOTHYROXINE
     Dosage: 100 MCG 1 TABLET DAILY WITH BREAKFAST
  4. SALBUTAMOL [Concomitant]
     Active Substance: ALBUTEROL
     Dosage: 2 INHALATION 4 TIMES A DAY IF NEEDED
  5. ACETYLSALICYLIC ACID [Concomitant]
     Active Substance: ASPIRIN
     Dosage: 80 MG 1 TABLET DAILY IN THE MORNING
  6. TIOTROPIUM [Concomitant]
     Active Substance: TIOTROPIUM
     Dosage: 1 INHALATION ONCE A DAY IN THE MORNING
  7. CLOZARIL [Suspect]
     Active Substance: CLOZAPINE
     Indication: SCHIZOPHRENIA
     Dosage: 575MG (5 X100 MG TABLETS  AND 3*25 MG TABLETS) AT BEDTIME
     Route: 048
     Dates: start: 20140718, end: 20180215
  8. PANTOPRAZOLE [Concomitant]
     Active Substance: PANTOPRAZOLE
     Dosage: 40 MG 1 TABLET DAILY WITH BREAKFAST
  9. DIVALPROEX [Concomitant]
     Active Substance: DIVALPROEX SODIUM
     Dosage: 500 MG 1 TABLET TWICE DAILY AT BREAKFAST AND AT BEDTIME
  10. ROSUVASTATIN. [Concomitant]
     Active Substance: ROSUVASTATIN
     Dosage: 1 TABLET DAILY AT BEDTIME REGULARLY

REACTIONS (5)
  - Constipation [Unknown]
  - Sudden death [Fatal]
  - Hypertension [Unknown]
  - Bronchitis [Unknown]
  - Agitation [Unknown]

NARRATIVE: CASE EVENT DATE: 20180215
